FAERS Safety Report 6078948-4 (Version None)
Quarter: 2009Q1

REPORT INFORMATION
  Report Type: 
  Country: None (occurrence: None)
  Receive Date: 20090216
  Receipt Date: 20090202
  Transmission Date: 20090719
  Serious: Yes (Hospitalization)
  Sender: FDA-Public Use
  Company Number: US-ELI_LILLY_AND_COMPANY-US200902000202

PATIENT
  Sex: Male

DRUGS (1)
  1. FORTEO [Suspect]
     Indication: HIP FRACTURE
     Dates: start: 20090121

REACTIONS (3)
  - HOSPITALISATION [None]
  - MALAISE [None]
  - WHITE BLOOD CELL COUNT DECREASED [None]
